FAERS Safety Report 13837293 (Version 1)
Quarter: 2017Q3

REPORT INFORMATION
  Report Type: Spontaneous
  Country: US (occurrence: US)
  Receive Date: 20170804
  Receipt Date: 20170804
  Transmission Date: 20171127
  Serious: No
  Sender: FDA-Public Use
  Company Number: US-ROCHE-652118

PATIENT
  Age: 75 Year
  Sex: Female

DRUGS (3)
  1. RALOXIFENE. [Concomitant]
     Active Substance: RALOXIFENE
  2. ACTONEL [Concomitant]
     Active Substance: RISEDRONATE SODIUM
     Indication: OSTEOPENIA
     Route: 048
     Dates: start: 200811, end: 200811
  3. BONIVA [Suspect]
     Active Substance: IBANDRONATE SODIUM
     Indication: OSTEOPOROSIS
     Route: 048

REACTIONS (7)
  - Muscle spasms [Unknown]
  - Arthralgia [Unknown]
  - Groin pain [Unknown]
  - Bone pain [Unknown]
  - Dysphagia [Unknown]
  - Osteoarthritis [Not Recovered/Not Resolved]
  - Arthritis [Unknown]

NARRATIVE: CASE EVENT DATE: 200901
